FAERS Safety Report 16525793 (Version 1)
Quarter: 2019Q3

REPORT INFORMATION
  Report Type: Spontaneous
  Country: US (occurrence: US)
  Receive Date: 20190703
  Receipt Date: 20190703
  Transmission Date: 20191004
  Serious: No
  Sender: FDA-Public Use
  Company Number: US-GLENMARK PHARMACEUTICALS-2019GMK041641

PATIENT

DRUGS (1)
  1. CLOBETASOL PROPIONATE OINTMENT USPN [Suspect]
     Active Substance: CLOBETASOL PROPIONATE
     Indication: ECZEMA
     Dosage: ONCE A DAY AS NEEDED IF THERE WAS FLARE UPS
     Route: 061

REACTIONS (3)
  - No adverse event [Unknown]
  - Product container issue [Unknown]
  - Expired product administered [Unknown]
